FAERS Safety Report 9745690 (Version 1)
Quarter: 2013Q4

REPORT INFORMATION
  Report Type: Spontaneous
  Country: BR (occurrence: BR)
  Receive Date: 20131211
  Receipt Date: 20131211
  Transmission Date: 20140711
  Serious: Yes (Other)
  Sender: FDA-Public Use
  Company Number: BR-VERTEX PHARMACEUTICALS INC-2013-011698

PATIENT
  Sex: 0

DRUGS (1)
  1. INCIVO [Suspect]
     Indication: HEPATITIS C
     Route: 065

REACTIONS (1)
  - Cardiac disorder [Unknown]
